FAERS Safety Report 7441907-0 (Version None)
Quarter: 2011Q2

REPORT INFORMATION
  Report Type: 
  Country: None (occurrence: None)
  Receive Date: 20110426
  Receipt Date: 20110426
  Transmission Date: 20111010
  Serious: Yes (Death, Life-Threatening, Hospitalization)
  Sender: FDA-Public Use
  Company Number: None

PATIENT
  Sex: Male
  Weight: 131.5431 kg

DRUGS (2)
  1. SOTALOL HCL [Suspect]
     Indication: ATRIAL FIBRILLATION
     Dates: start: 20110309, end: 20110312
  2. SOTALOL HCL [Suspect]
     Indication: ATRIAL FIBRILLATION
     Dates: start: 20110307, end: 20110308

REACTIONS (4)
  - BRAIN DEATH [None]
  - VENTRICULAR FIBRILLATION [None]
  - BRADYCARDIA [None]
  - CARDIAC ARREST [None]
